FAERS Safety Report 4477135-0 (Version None)
Quarter: 2004Q4

REPORT INFORMATION
  Report Type: 
  Country: None (occurrence: None)
  Receive Date: 20041018
  Receipt Date: 20041005
  Transmission Date: 20050328
  Serious: Yes (Life-Threatening)
  Sender: FDA-Public Use
  Company Number: US-MERCK-0410USA00631

PATIENT
  Age: 59 Year
  Sex: Female
  Weight: 80 kg

DRUGS (1)
  1. FOSAMAX [Suspect]
     Indication: OSTEOPOROSIS
     Route: 048
     Dates: start: 20010501, end: 20030601

REACTIONS (13)
  - ADVERSE EVENT [None]
  - AGGRESSION [None]
  - ANGER [None]
  - ANXIETY [None]
  - COUGH [None]
  - DYSPEPSIA [None]
  - DYSPHAGIA [None]
  - DYSPNOEA [None]
  - FEAR [None]
  - PALPITATIONS [None]
  - SNEEZING [None]
  - THROAT TIGHTNESS [None]
  - TINNITUS [None]
